FAERS Safety Report 4655835-7 (Version None)
Quarter: 2005Q2

REPORT INFORMATION
  Report Type: 
  Country: None (occurrence: None)
  Receive Date: 20050506
  Receipt Date: 20050506
  Transmission Date: 20051028
  Serious: Yes (Hospitalization)
  Sender: FDA-Public Use
  Company Number: None

PATIENT
  Age: 52 Year
  Sex: Female

DRUGS (7)
  1. CARBOPLATIN [Suspect]
     Indication: BREAST CANCER
     Dosage: 700 MG - Q3WKS  - IV
     Route: 042
     Dates: start: 20050308, end: 20050308
  2. TAXOL [Suspect]
     Dosage: 105 MG - QWK  - IV
     Route: 042
     Dates: start: 20050308, end: 20050308
  3. ANZEMET [Concomitant]
  4. DECADRON [Concomitant]
  5. BENADRYL [Concomitant]
  6. ZANTAC [Concomitant]
  7. HERCEPTIN [Concomitant]

REACTIONS (4)
  - BRONCHITIS [None]
  - DEHYDRATION [None]
  - POST PROCEDURAL COMPLICATION [None]
  - PYREXIA [None]
